FAERS Safety Report 6019676-0 (Version None)
Quarter: 2008Q4

REPORT INFORMATION
  Report Type: 
  Country: None (occurrence: None)
  Receive Date: 20081224
  Receipt Date: 20081217
  Transmission Date: 20090506
  Serious: Yes (Hospitalization, Other)
  Sender: FDA-Public Use
  Company Number: US-AMGEN-QUU320387

PATIENT
  Sex: Female
  Weight: 72.6 kg

DRUGS (8)
  1. NEULASTA [Suspect]
     Indication: CHEMOTHERAPY
     Route: 058
     Dates: start: 20081118, end: 20081118
  2. ADRIAMYCIN PFS [Concomitant]
     Dates: start: 20081117
  3. CYTOXAN [Concomitant]
     Dates: start: 20081117
  4. ALOXI [Concomitant]
     Dates: start: 20081117
  5. DECADRON [Concomitant]
     Dates: start: 20081117
  6. DEPAKOTE [Concomitant]
  7. TOPAMAX [Concomitant]
  8. ATARAX [Concomitant]

REACTIONS (8)
  - ANAPHYLACTIC REACTION [None]
  - DYSPNOEA [None]
  - FATIGUE [None]
  - HEART RATE INCREASED [None]
  - MICTURITION URGENCY [None]
  - RASH [None]
  - URINE ABNORMALITY [None]
  - URINE ODOUR ABNORMAL [None]
